FAERS Safety Report 9863974 (Version 3)
Quarter: 2014Q1

REPORT INFORMATION
  Report Type: Spontaneous
  Country: US (occurrence: US)
  Receive Date: 20140203
  Receipt Date: 20140331
  Transmission Date: 20141002
  Serious: Yes (Death, Other)
  Sender: FDA-Public Use
  Company Number: US-RB-063013-14

PATIENT
  Age: 4 Year
  Sex: Female

DRUGS (1)
  1. SUBOXONE TABLET [Suspect]
     Indication: ACCIDENTAL EXPOSURE TO PRODUCT BY CHILD
     Dosage: UNKNOWN DOSE SWALLOWED
     Route: 048
     Dates: start: 20130831, end: 20130831

REACTIONS (3)
  - Accidental exposure to product by child [Fatal]
  - Toxicity to various agents [Fatal]
  - Respiratory arrest [Fatal]
